FAERS Safety Report 4582267-2 (Version None)
Quarter: 2005Q1

REPORT INFORMATION
  Report Type: 
  Country: None (occurrence: None)
  Receive Date: 20050127
  Receipt Date: 20040924
  Transmission Date: 20050727
  Serious: No
  Sender: FDA-Public Use
  Company Number: USA040979265

PATIENT
  Age: 10 Year
  Sex: Male

DRUGS (4)
  1. STRATTERA [Suspect]
     Indication: ATTENTION DEFICIT/HYPERACTIVITY DISORDER
     Dosage: 25 MG DAY
     Dates: start: 20040801, end: 20040920
  2. ZYRTEC [Concomitant]
  3. FLONASE [Concomitant]
  4. FLOVENT [Concomitant]

REACTIONS (5)
  - ABNORMAL BEHAVIOUR [None]
  - ANXIETY [None]
  - CRYING [None]
  - MOOD ALTERED [None]
  - STOMACH DISCOMFORT [None]
